FAERS Safety Report 6050500-6 (Version None)
Quarter: 2009Q1

REPORT INFORMATION
  Report Type: 
  Country: None (occurrence: None)
  Receive Date: 20090126
  Receipt Date: 20090114
  Transmission Date: 20090719
  Serious: Yes (Hospitalization, Other)
  Sender: FDA-Public Use
  Company Number: PHHY2008GB33370

PATIENT
  Sex: Female

DRUGS (9)
  1. CLOZARIL [Suspect]
     Indication: SCHIZOPHRENIA
     Dosage: UNK
     Route: 048
     Dates: start: 20081218
  2. CLOZARIL [Suspect]
     Dosage: 12.5 MG, QD
     Route: 048
     Dates: start: 20081219, end: 20081220
  3. CLOZARIL [Suspect]
     Dosage: 12.5 MG, BID
     Route: 048
     Dates: start: 20081220, end: 20081221
  4. CLOZARIL [Suspect]
     Dosage: 25 MG, QHS
     Route: 048
     Dates: start: 20081221, end: 20081222
  5. CLOZARIL [Suspect]
     Dosage: 25 MG, BID
     Route: 048
     Dates: start: 20081222, end: 20081224
  6. PERINDOPRIL [Concomitant]
     Indication: HYPERTENSION
     Dosage: 4 MG, QD
     Route: 048
     Dates: start: 20081219
  7. ATORVASTATIN [Concomitant]
     Indication: BLOOD CHOLESTEROL INCREASED
     Dosage: 10 MG, QHS
     Route: 048
     Dates: start: 20081209
  8. TRIMETHOPRIM [Concomitant]
     Indication: URINARY TRACT INFECTION
     Dosage: 200 MG, BID
     Route: 048
     Dates: start: 20081224, end: 20090101
  9. OXYBUTYNIN CHLORIDE [Concomitant]
     Dosage: 5 MG, QD
     Route: 048
     Dates: start: 20081210

REACTIONS (12)
  - ABASIA [None]
  - BLOOD CREATINE PHOSPHOKINASE INCREASED [None]
  - BLOOD PRESSURE ABNORMAL [None]
  - BODY TEMPERATURE INCREASED [None]
  - HEART RATE INCREASED [None]
  - HYPERTONIA [None]
  - MALAISE [None]
  - MENTAL DISORDER [None]
  - POSTURE ABNORMAL [None]
  - SPEECH DISORDER [None]
  - TACHYCARDIA [None]
  - URINARY INCONTINENCE [None]
